FAERS Safety Report 17591727 (Version 2)
Quarter: 2020Q1

REPORT INFORMATION
  Report Type: Spontaneous
  Country: DK (occurrence: DK)
  Receive Date: 20200327
  Receipt Date: 20200330
  Transmission Date: 20200409
  Serious: Yes (Death)
  Sender: FDA-Public Use
  Company Number: DK-MYLANLABS-2020M1032342

PATIENT
  Age: 49 Year
  Sex: Female
  Weight: 143 kg

DRUGS (6)
  1. CLOZAPINE ORIFARM [Suspect]
     Active Substance: CLOZAPINE
     Indication: SCHIZOPHRENIA
     Dosage: STYRKE: 25 MG.
     Route: 048
     Dates: start: 20190731
  2. ROXITHROMYCIN [Suspect]
     Active Substance: ROXITHROMYCIN
     Indication: PNEUMONIA
     Dosage: DOSAGE: 300 MG DAILY, STRENGTH: UNKNOWN
     Route: 048
     Dates: start: 201912
  3. PROMETHAZINE [Concomitant]
     Active Substance: PROMETHAZINE HYDROCHLORIDE
     Indication: PRODUCT USED FOR UNKNOWN INDICATION
     Dosage: DOSIS: UKENDT. STYRKE: UKENDT.
  4. OLANZAPINE. [Suspect]
     Active Substance: OLANZAPINE
     Indication: SCHIZOPHRENIA
     Dosage: STRENGTH: 10 MG.
     Route: 048
  5. CLONAZEPAM. [Concomitant]
     Active Substance: CLONAZEPAM
     Indication: PRODUCT USED FOR UNKNOWN INDICATION
     Dosage: DOSIS: UKENDT. STYRKE:UKENDT.
     Route: 048
  6. METFORMIN [Concomitant]
     Active Substance: METFORMIN HYDROCHLORIDE
     Indication: TYPE 2 DIABETES MELLITUS
     Dosage: STYRKE: 500 MG.
     Route: 048
     Dates: start: 20171030

REACTIONS (1)
  - Electrocardiogram QT prolonged [Fatal]

NARRATIVE: CASE EVENT DATE: 20200105
